FAERS Safety Report 5522548-9 (Version None)
Quarter: 2007Q4

REPORT INFORMATION
  Report Type: 
  Country: None (occurrence: None)
  Receive Date: 20071120
  Receipt Date: 20071112
  Transmission Date: 20080405
  Serious: Yes (Life-Threatening, Disabling)
  Sender: FDA-Public Use
  Company Number: JP-SANOFI-SYNTHELABO-A01200709608

PATIENT
  Sex: Male
  Weight: 65 kg

DRUGS (7)
  1. MEROPENEM [Concomitant]
     Indication: PHLEBITIS
     Route: 042
     Dates: start: 20070814, end: 20070909
  2. LEVOFLOXACIN [Concomitant]
     Indication: PHLEBITIS
     Route: 048
     Dates: start: 20070804
  3. FLOMOXEF [Concomitant]
     Indication: PREMEDICATION
     Route: 042
     Dates: start: 20070803, end: 20070803
  4. DEXAMETHASONE SODIUM PHOSPHATE [Concomitant]
     Indication: PREMEDICATION
     Route: 042
     Dates: start: 20070627, end: 20070725
  5. LEUCOVORIN CALCIUM [Concomitant]
     Dosage: 167 MG/BODY=100 MG/M2
     Route: 042
     Dates: start: 20070725, end: 20070726
  6. OXALIPLATIN [Suspect]
     Indication: RECTAL CANCER
     Dosage: 142 MG/BODY=85 MG/M2
     Route: 042
     Dates: start: 20070725, end: 20070725
  7. FLUOROURACIL [Concomitant]
     Dosage: 668 MG/BODY=400 MG/M2 BOLUS THEN 1002 MG/BODY=600 MG/M2 INFUSION D1-2
     Route: 042
     Dates: start: 20070725, end: 20070726

REACTIONS (1)
  - GUILLAIN-BARRE SYNDROME [None]
